FAERS Safety Report 4994964-5 (Version None)
Quarter: 2006Q2

REPORT INFORMATION
  Report Type: 
  Country: None (occurrence: None)
  Receive Date: 20060503
  Receipt Date: 20060421
  Transmission Date: 20061013
  Serious: Yes (Hospitalization)
  Sender: FDA-Public Use
  Company Number: WAES 0604ESP00034

PATIENT
  Age: 72 Year
  Sex: Female

DRUGS (6)
  1. HYZAAR [Suspect]
     Indication: ESSENTIAL HYPERTENSION
     Dosage: PO
     Route: 048
     Dates: start: 20051101, end: 20060228
  2. TAB TERTENSIF (INDAPAMIDE) [Suspect]
     Indication: ESSENTIAL HYPERTENSION
     Dosage: PO
     Route: 048
     Dates: start: 20050101, end: 20060228
  3. ASPIRIN [Concomitant]
  4. BROMAZEPAM [Concomitant]
  5. LERCANIDIPINE HYDROCHLORIDE [Concomitant]
  6. OMEPRAZOLE [Concomitant]

REACTIONS (2)
  - DRUG INTERACTION [None]
  - HYPOKALAEMIA [None]
